FAERS Safety Report 16003937 (Version 1)
Quarter: 2019Q1

REPORT INFORMATION
  Report Type: Spontaneous
  Country: US (occurrence: US)
  Receive Date: 20190129
  Receipt Date: 20190129
  Transmission Date: 20190418
  Serious: Yes (Hospitalization)
  Sender: FDA-Public Use
  Company Number: None

PATIENT
  Age: 50 Year
  Sex: Male
  Weight: 72.57 kg

DRUGS (2)
  1. PYRIDOSTIGMINE 180 QD [Suspect]
     Active Substance: PYRIDOSTIGMINE
     Indication: DRUG THERAPY
     Route: 048
  2. PYRIDOSTIGMINE 60 QID [Suspect]
     Active Substance: PYRIDOSTIGMINE
     Indication: HOSPITALISATION
     Route: 048

REACTIONS (4)
  - Product substitution issue [None]
  - Asthenia [None]
  - Hypoxia [None]
  - Muscular weakness [None]

NARRATIVE: CASE EVENT DATE: 20130101
